FAERS Safety Report 8842184 (Version 1)
Quarter: 2012Q4

REPORT INFORMATION
  Report Type: 
  Country: DE (occurrence: DE)
  Receive Date: 20121016
  Receipt Date: 20121016
  Transmission Date: 20130627
  Serious: Yes (Hospitalization)
  Sender: FDA-Public Use
  Company Number: PHHY2012DE074771

PATIENT
  Age: 75 Year
  Sex: Male

DRUGS (4)
  1. FLUVASTATIN SODIUM [Suspect]
     Dosage: 20 mg, UNK
     Dates: end: 201206
  2. EXFORGE HCT [Suspect]
     Dosage: 1 DF, QD (in the morning)
     Dates: start: 20120115
  3. METFORMIN [Concomitant]
  4. ASPIRIN PROTECT [Concomitant]

REACTIONS (3)
  - Foot fracture [Not Recovered/Not Resolved]
  - Impaired healing [Unknown]
  - Blood creatine phosphokinase increased [Recovering/Resolving]
